FAERS Safety Report 5114222-8 (Version None)
Quarter: 2006Q3

REPORT INFORMATION
  Report Type: 
  Country: None (occurrence: None)
  Receive Date: 20060925
  Receipt Date: 20060915
  Transmission Date: 20061208
  Serious: Yes (Hospitalization)
  Sender: FDA-Public Use
  Company Number: DE-ROXANE LABORATORIES, INC-2006-BP-10826RO

PATIENT
  Age: 67 Year
  Sex: Female
  Weight: 68 kg

DRUGS (4)
  1. CITALOPRAM HYDROBROMIDE [Suspect]
     Indication: DEPRESSION
  2. METOPROLOL [Concomitant]
     Indication: HYPERTENSION
  3. HYDROCHLOROTHIAZDE TAB [Concomitant]
     Indication: HYPERTENSION
  4. ENALAPRIL [Concomitant]
     Indication: HYPERTENSION

REACTIONS (10)
  - ANOREXIA [None]
  - APATHY [None]
  - BLOOD OSMOLARITY DECREASED [None]
  - BUNDLE BRANCH BLOCK LEFT [None]
  - HAEMOGLOBIN DECREASED [None]
  - HYPOKALAEMIA [None]
  - HYPONATRAEMIA [None]
  - INAPPROPRIATE ANTIDIURETIC HORMONE SECRETION [None]
  - LETHARGY [None]
  - URINE OSMOLARITY INCREASED [None]
